FAERS Safety Report 25278522 (Version 2)
Quarter: 2025Q2

REPORT INFORMATION
  Report Type: Spontaneous
  Country: US (occurrence: US)
  Receive Date: 20250507
  Receipt Date: 20250606
  Transmission Date: 20250717
  Serious: No
  Sender: PFIZER
  Company Number: US-PFIZER INC-202500005310

PATIENT
  Age: 75 Year
  Sex: Female
  Weight: 62.8 kg

DRUGS (2)
  1. TIVDAK [Suspect]
     Active Substance: TISOTUMAB VEDOTIN-TFTV
     Dosage: 145 MG, EVERY 3 WEEKS (EVERY 21 DAYS BY IV INFUSION)
     Route: 042
  2. TIVDAK [Suspect]
     Active Substance: TISOTUMAB VEDOTIN-TFTV
     Dosage: 120 MG, EVERY 3 WEEKS (EVERY 21 DAYS BY IV INFUSION)
     Route: 042

REACTIONS (2)
  - Off label use [Unknown]
  - Weight decreased [Unknown]
